FAERS Safety Report 5254680-1 (Version None)
Quarter: 2007Q1

REPORT INFORMATION
  Report Type: 
  Country: None (occurrence: None)
  Receive Date: 20070227
  Receipt Date: 20070220
  Transmission Date: 20070707
  Serious: Yes (Other)
  Sender: FDA-Public Use
  Company Number: 236947

PATIENT
  Age: 52 Year
  Sex: Female
  Weight: 50.8 kg

DRUGS (3)
  1. AVASTIN [Suspect]
     Indication: BREAST CANCER
     Dosage: 514 MG, Q2W, INTRAVENOUS
     Route: 042
     Dates: start: 20070131, end: 20070218
  2. HERCEPTIN [Suspect]
     Indication: BREAST CANCER
     Dosage: 330 MG
     Dates: start: 20070207
  3. TAXOL [Concomitant]

REACTIONS (1)
  - GASTROINTESTINAL HAEMORRHAGE [None]
